FAERS Safety Report 25260634 (Version 1)
Quarter: 2025Q2

REPORT INFORMATION
  Report Type: Spontaneous
  Country: US (occurrence: US)
  Receive Date: 20250501
  Receipt Date: 20250501
  Transmission Date: 20250717
  Serious: Yes (Other)
  Sender: NOVO NORDISK
  Company Number: US-NOVOPROD-1408807

PATIENT
  Sex: Male

DRUGS (1)
  1. OZEMPIC [Suspect]
     Active Substance: SEMAGLUTIDE
     Indication: Product used for unknown indication

REACTIONS (8)
  - Ventricular extrasystoles [Not Recovered/Not Resolved]
  - Weight increased [Not Recovered/Not Resolved]
  - Increased appetite [Not Recovered/Not Resolved]
  - Blood glucose decreased [Not Recovered/Not Resolved]
  - Fatigue [Not Recovered/Not Resolved]
  - Dizziness [Not Recovered/Not Resolved]
  - Dyspepsia [Not Recovered/Not Resolved]
  - Constipation [Not Recovered/Not Resolved]
